FAERS Safety Report 7737705-0 (Version None)
Quarter: 2011Q3

REPORT INFORMATION
  Report Type: 
  Country: None (occurrence: None)
  Receive Date: 20110908
  Receipt Date: 20110907
  Transmission Date: 20111222
  Serious: Yes (Other)
  Sender: FDA-Public Use
  Company Number: US-TEVA-296755USA

PATIENT
  Sex: Female

DRUGS (1)
  1. CLARAVIS [Suspect]
     Dosage: 60 MILLIGRAM;
     Route: 048
     Dates: start: 20110705, end: 20110807

REACTIONS (2)
  - ABORTION MISSED [None]
  - UNINTENDED PREGNANCY [None]
